FAERS Safety Report 5389390-3 (Version None)
Quarter: 2007Q3

REPORT INFORMATION
  Report Type: 
  Country: None (occurrence: None)
  Receive Date: 20070717
  Receipt Date: 20070706
  Transmission Date: 20080115
  Serious: Yes (Life-Threatening)
  Sender: FDA-Public Use
  Company Number: KR-ROCHE-506032

PATIENT
  Age: 57 Year
  Sex: Female

DRUGS (4)
  1. BONIVA [Suspect]
     Indication: OSTEOPOROSIS
     Route: 065
     Dates: start: 20070608
  2. ASCORBIC ACID [Concomitant]
  3. ANTIHYPERTENSIVE NOS [Concomitant]
  4. GINSENG [Concomitant]

REACTIONS (3)
  - ANGIOEDEMA [None]
  - INFLUENZA LIKE ILLNESS [None]
  - URTICARIA [None]
